FAERS Safety Report 8564661-8 (Version None)
Quarter: 2012Q3

REPORT INFORMATION
  Report Type: 
  Country: None (occurrence: None)
  Receive Date: 20120803
  Receipt Date: 20120728
  Transmission Date: 20120928
  Serious: Yes (Hospitalization)
  Sender: FDA-Public Use
  Company Number: US-ABBOTT-12P-163-0959249-00

PATIENT
  Age: 64 Year
  Sex: Female

DRUGS (6)
  1. HUMIRA [Suspect]
     Indication: CROHN'S DISEASE
     Dosage: LOADING DOSE
     Dates: start: 20120626, end: 20120626
  2. PREDNISONE [Concomitant]
     Indication: CROHN'S DISEASE
     Dosage: 25 MG DAILY
  3. LIALDA [Concomitant]
     Indication: COLITIS ULCERATIVE
     Dosage: 4 PILLS IN AM
  4. DIAZIDE [Concomitant]
     Indication: BLOOD PRESSURE
     Dosage: 37.5 MG DAILY
  5. HUMIRA [Suspect]
     Route: 058
     Dates: start: 20120712
  6. ATENOLOL [Concomitant]
     Indication: BLOOD PRESSURE
     Dosage: 25 MG DAILY

REACTIONS (9)
  - BACK PAIN [None]
  - PYREXIA [None]
  - PLEURAL EFFUSION [None]
  - FEELING ABNORMAL [None]
  - ADVERSE DRUG REACTION [None]
  - GALLBLADDER DISORDER [None]
  - DYSPNOEA [None]
  - NEPHROLITHIASIS [None]
  - PULMONARY EMBOLISM [None]
